FAERS Safety Report 14969070 (Version 2)
Quarter: 2018Q4

REPORT INFORMATION
  Report Type: Spontaneous
  Country: US (occurrence: US)
  Receive Date: 20180604
  Receipt Date: 20181115
  Transmission Date: 20190204
  Serious: No
  Sender: FDA-Public Use
  Company Number: US-SA-2018SA146897

PATIENT
  Sex: Female

DRUGS (5)
  1. HYDROXYZINE [Concomitant]
     Active Substance: HYDROXYZINE HYDROCHLORIDE
  2. MONTELUKAST [Concomitant]
     Active Substance: MONTELUKAST SODIUM
  3. DULERA [Concomitant]
     Active Substance: FORMOTEROL FUMARATE DIHYDRATE\MOMETASONE FUROATE
  4. CLOBETASOL [Concomitant]
     Active Substance: CLOBETASOL
  5. DUPIXENT [Suspect]
     Active Substance: DUPILUMAB
     Indication: PRURIGO
     Dosage: 300 MG, QOW
     Route: 058
     Dates: start: 20180516

REACTIONS (1)
  - Oral herpes [Not Recovered/Not Resolved]
